FAERS Safety Report 10049980 (Version 1)
Quarter: 2014Q2

REPORT INFORMATION
  Report Type: Report from Study
  Country: CA (occurrence: CA)
  Receive Date: 20140401
  Receipt Date: 20140401
  Transmission Date: 20141212
  Serious: Yes (Other)
  Sender: FDA-Public Use
  Company Number: CA-JNJFOC-20140316531

PATIENT
  Age: 78 Year
  Sex: Female
  Weight: 40 kg

DRUGS (5)
  1. REMICADE [Suspect]
     Indication: COLITIS ULCERATIVE
     Dosage: 11 INFUSION
     Route: 042
     Dates: start: 20140211
  2. REMICADE [Suspect]
     Indication: COLITIS ULCERATIVE
     Route: 042
     Dates: start: 20121001
  3. SALOFALK [Concomitant]
     Route: 048
  4. IMURAN [Concomitant]
     Route: 048
  5. ATIVAN [Concomitant]
     Route: 048

REACTIONS (1)
  - VIIth nerve paralysis [Unknown]
